FAERS Safety Report 11218675 (Version 2)
Quarter: 2015Q3

REPORT INFORMATION
  Report Type: Spontaneous
  Country: TR (occurrence: TR)
  Receive Date: 20150625
  Receipt Date: 20150706
  Transmission Date: 20151125
  Serious: Yes (Other)
  Sender: FDA-Public Use
  Company Number: PHHY2015TR075831

PATIENT
  Age: 21 Year
  Sex: Female

DRUGS (3)
  1. ILARIS [Suspect]
     Active Substance: CANAKINUMAB
     Dosage: 2 DF, QMO
     Route: 065
  2. ILARIS [Suspect]
     Active Substance: CANAKINUMAB
     Indication: FAMILIAL MEDITERRANEAN FEVER
     Dosage: 2 DF, WITH 15 DAYS INTERVAL
     Route: 065
  3. ILARIS [Suspect]
     Active Substance: CANAKINUMAB
     Dosage: 1 DF, EVERY TWO MONTHS
     Route: 065

REACTIONS (4)
  - Weight increased [Unknown]
  - Increased appetite [Unknown]
  - Familial mediterranean fever [Unknown]
  - Off label use [Unknown]
